FAERS Safety Report 7301636-0 (Version None)
Quarter: 2011Q1

REPORT INFORMATION
  Report Type: 
  Country: None (occurrence: None)
  Receive Date: 20110218
  Receipt Date: 20110215
  Transmission Date: 20110831
  Serious: Yes (Other)
  Sender: FDA-Public Use
  Company Number: FR-AMGEN-UK372794

PATIENT
  Age: 77 Year
  Sex: Female
  Weight: 70 kg

DRUGS (3)
  1. ACETYLSALICYLIC ACID [Concomitant]
     Dosage: UNK UNK, UNK
     Route: 065
  2. NPLATE [Suspect]
     Indication: PRODUCT USED FOR UNKNOWN INDICATION
     Dosage: 280 A?G, QWK
     Route: 065
     Dates: start: 20090601, end: 20091028
  3. CORTISONE [Concomitant]

REACTIONS (3)
  - PLATELET COUNT ABNORMAL [None]
  - PAIN [None]
  - INSOMNIA [None]
